FAERS Safety Report 14322591 (Version 2)
Quarter: 2018Q2

REPORT INFORMATION
  Report Type: Report from Study
  Country: AR (occurrence: AR)
  Receive Date: 20171225
  Receipt Date: 20180430
  Transmission Date: 20180711
  Serious: Yes (Death, Other)
  Sender: FDA-Public Use
  Company Number: PHHY2017AR094821

PATIENT
  Age: 74 Year
  Sex: Female

DRUGS (2)
  1. TAFINLAR [Suspect]
     Active Substance: DABRAFENIB MESYLATE
     Indication: MALIGNANT MELANOMA
     Dosage: 300 MG, QD
     Route: 065
     Dates: start: 20170105
  2. MEKINIST [Suspect]
     Active Substance: TRAMETINIB DIMETHYL SULFOXIDE
     Indication: METASTATIC MALIGNANT MELANOMA
     Dosage: 2 MG, UNK
     Route: 065
     Dates: start: 20170105

REACTIONS (5)
  - Brain neoplasm [Not Recovered/Not Resolved]
  - Fall [Not Recovered/Not Resolved]
  - Metastasis [Fatal]
  - Pain in extremity [Not Recovered/Not Resolved]
  - Treatment failure [Not Recovered/Not Resolved]

NARRATIVE: CASE EVENT DATE: 20180324
